FAERS Safety Report 4692700-3 (Version None)
Quarter: 2005Q2

REPORT INFORMATION
  Report Type: 
  Country: None (occurrence: None)
  Receive Date: 20050617
  Receipt Date: 20050606
  Transmission Date: 20051028
  Serious: Yes (Hospitalization)
  Sender: FDA-Public Use
  Company Number: FR-ROCHE-406892

PATIENT
  Age: 17 Year
  Sex: Female
  Weight: 50 kg

DRUGS (2)
  1. ROACCUTANE [Suspect]
     Indication: ACNE
     Route: 048
  2. ROACCUTANE [Suspect]
     Route: 048
     Dates: start: 20020615, end: 20030615

REACTIONS (6)
  - BACK PAIN [None]
  - BLOOD CREATININE INCREASED [None]
  - GLOMERULONEPHRITIS [None]
  - HAEMATURIA [None]
  - PROTEINURIA [None]
  - VOMITING [None]
